FAERS Safety Report 6464924-6 (Version None)
Quarter: 2009Q4

REPORT INFORMATION
  Report Type: 
  Country: None (occurrence: None)
  Receive Date: 20091201
  Receipt Date: 20091120
  Transmission Date: 20100525
  Serious: Yes (Death, Hospitalization)
  Sender: FDA-Public Use
  Company Number: AR-BRISTOL-MYERS SQUIBB COMPANY-12820874

PATIENT
  Age: 66 Year
  Sex: Female
  Weight: 117 kg

DRUGS (2)
  1. IRBESARTAN [Suspect]
     Indication: HYPERTENSION
     Dates: start: 20040806
  2. WARFARIN SODIUM [Suspect]
     Indication: PROPHYLAXIS
     Dosage: TEMPORARILY INTERRUPTED FROM 03-JAN-2005 TO 19-JAN-2005
     Route: 048
     Dates: start: 20040806

REACTIONS (2)
  - HAEMATOMA INFECTION [None]
  - SUDDEN DEATH [None]
